FAERS Safety Report 10026015 (Version 1)
Quarter: 2014Q1

REPORT INFORMATION
  Report Type: Spontaneous
  Country: FI (occurrence: FI)
  Receive Date: 20140320
  Receipt Date: 20140320
  Transmission Date: 20141002
  Serious: Yes (Other)
  Sender: FDA-Public Use
  Company Number: PHHY2014FI030902

PATIENT
  Age: 56 Year
  Sex: Male

DRUGS (6)
  1. PRAVASTATIN [Suspect]
     Dosage: 10 MG, QD
  2. ACETYLSALICYLIC ACID [Concomitant]
     Dosage: 100 MG, QD
  3. EZETIMIBE [Concomitant]
     Dosage: 10 MG, QD
  4. METOPROLOL [Concomitant]
     Dosage: 47.5 MG, QD
  5. THYROXINE [Concomitant]
     Dosage: 1.5 DF, UNK
  6. THYROXINE [Concomitant]
     Dosage: 1 DF, QD

REACTIONS (7)
  - Gait disturbance [Recovering/Resolving]
  - Neuropathy peripheral [Recovering/Resolving]
  - Myopathy [Recovering/Resolving]
  - Muscular weakness [Recovering/Resolving]
  - Muscle atrophy [Recovering/Resolving]
  - Muscle oedema [Unknown]
  - Myositis [Recovering/Resolving]
